FAERS Safety Report 14631160 (Version 2)
Quarter: 2021Q2

REPORT INFORMATION
  Report Type: Report from Study
  Country: US (occurrence: US)
  Receive Date: 20180313
  Receipt Date: 20210505
  Transmission Date: 20210716
  Serious: Yes (Hospitalization)
  Sender: FDA-Public Use
  Company Number: US-PFIZER INC-2018061921

PATIENT
  Age: 53 Year
  Sex: Female

DRUGS (3)
  1. IBRANCE [Suspect]
     Active Substance: PALBOCICLIB
     Dosage: 125 MG, 1X/DAY
     Route: 048
     Dates: start: 20180303
  2. IBRANCE [Suspect]
     Active Substance: PALBOCICLIB
     Dosage: 100 MG, 1X/DAY
     Route: 048
     Dates: start: 201802, end: 20210408
  3. IBRANCE [Suspect]
     Active Substance: PALBOCICLIB
     Indication: BREAST CANCER METASTATIC
     Dosage: 125 MG, 1X/DAY
     Route: 048
     Dates: start: 20180203, end: 20180223

REACTIONS (7)
  - Nausea [Not Recovered/Not Resolved]
  - Anaemia [Recovered/Resolved]
  - Chills [Unknown]
  - Pyrexia [Unknown]
  - Leukopenia [Unknown]
  - Fatigue [Not Recovered/Not Resolved]
  - Neoplasm progression [Unknown]

NARRATIVE: CASE EVENT DATE: 201802
